FAERS Safety Report 14940663 (Version 1)
Quarter: 2018Q2

REPORT INFORMATION
  Report Type: Spontaneous
  Country: US (occurrence: US)
  Receive Date: 20180525
  Receipt Date: 20180525
  Transmission Date: 20180711
  Serious: No
  Sender: FDA-Public Use
  Company Number: US-BAUSCH-BL-2018-004059

PATIENT
  Age: 74 Year
  Sex: Female
  Weight: 81.72 kg

DRUGS (2)
  1. VYZULTA [Suspect]
     Active Substance: LATANOPROSTENE BUNOD
     Indication: GLAUCOMA
     Route: 047
     Dates: start: 20180105, end: 20180214
  2. RESTASIS OPHTHALMIC SOLUTION 0.05% [Concomitant]
     Indication: DRY EYE
     Route: 047

REACTIONS (1)
  - Burning sensation [Recovered/Resolved]

NARRATIVE: CASE EVENT DATE: 20180214
